FAERS Safety Report 25036412 (Version 1)
Quarter: 2025Q1

REPORT INFORMATION
  Report Type: Spontaneous
  Country: CA (occurrence: CA)
  Receive Date: 20250304
  Receipt Date: 20250304
  Transmission Date: 20250409
  Serious: Yes (Hospitalization, Other)
  Sender: TAKEDA
  Company Number: CA-TAKEDA-2025TUS019456

PATIENT
  Age: 60 Year
  Sex: Male
  Weight: 79.5 kg

DRUGS (3)
  1. ENTYVIO [Suspect]
     Active Substance: VEDOLIZUMAB
     Indication: Crohn^s disease
  2. PREDNISONE [Concomitant]
     Active Substance: PREDNISONE
  3. AMOXICILLIN\CLAVULANIC ACID [Concomitant]
     Active Substance: AMOXICILLIN\CLAVULANIC ACID

REACTIONS (9)
  - Crohn^s disease [Unknown]
  - Anal fistula [Unknown]
  - Colorectal cancer [Unknown]
  - Large intestine polyp [Unknown]
  - Anal abscess [Unknown]
  - Colon dysplasia [Unknown]
  - Therapy non-responder [Unknown]
  - Social problem [Unknown]
  - Impaired work ability [Unknown]

NARRATIVE: CASE EVENT DATE: 20250114
